FAERS Safety Report 4965350-9 (Version None)
Quarter: 2006Q2

REPORT INFORMATION
  Report Type: 
  Country: None (occurrence: None)
  Receive Date: 20060406
  Receipt Date: 20051114
  Transmission Date: 20061013
  Serious: Yes (Death, Disabling, Other)
  Sender: FDA-Public Use
  Company Number: US-MERCK-0511USA02761

PATIENT
  Age: 51 Year
  Sex: Female
  Weight: 92 kg

DRUGS (2)
  1. VIOXX [Suspect]
     Indication: CARDIAC DISORDER
     Route: 048
  2. VIOXX [Suspect]
     Route: 048

REACTIONS (14)
  - ANXIETY [None]
  - CARDIAC DISORDER [None]
  - CARDIOVASCULAR DISORDER [None]
  - CEREBROVASCULAR ACCIDENT [None]
  - DEATH [None]
  - DEEP VEIN THROMBOSIS [None]
  - EMOTIONAL DISTRESS [None]
  - MENTAL DISORDER [None]
  - PAIN [None]
  - PULMONARY EMBOLISM [None]
  - RENAL DISORDER [None]
  - RENAL FAILURE [None]
  - ROAD TRAFFIC ACCIDENT [None]
  - THROMBOSIS [None]
